FAERS Safety Report 25644042 (Version 1)
Quarter: 2025Q3

REPORT INFORMATION
  Report Type: Spontaneous
  Country: AR (occurrence: AR)
  Receive Date: 20250805
  Receipt Date: 20250805
  Transmission Date: 20251020
  Serious: Yes (Other)
  Sender: MYLAN
  Company Number: AR-MYLANLABS-2025M1066004

PATIENT
  Age: 32 Year
  Sex: Male

DRUGS (1)
  1. CLOZAPINE [Suspect]
     Active Substance: CLOZAPINE
     Indication: Product used for unknown indication

REACTIONS (4)
  - Neutropenia [Not Recovered/Not Resolved]
  - Leukopenia [Recovering/Resolving]
  - Monocyte count increased [Recovered/Resolved]
  - Eosinophil count increased [Recovered/Resolved]

NARRATIVE: CASE EVENT DATE: 20250715
